FAERS Safety Report 8952473 (Version 2)
Quarter: 2014Q1

REPORT INFORMATION
  Report Type: Spontaneous
  Country: US (occurrence: US)
  Receive Date: 20121205
  Receipt Date: 20140117
  Transmission Date: 20141002
  Serious: Yes (Other)
  Sender: FDA-Public Use
  Company Number: US-BAYER-2012-126434

PATIENT
  Age: 32 Year
  Sex: Female

DRUGS (10)
  1. YASMIN [Suspect]
     Dosage: UNK
     Dates: start: 20080711
  2. YAZ [Suspect]
     Dosage: UNK
     Dates: start: 20080711
  3. OCELLA [Suspect]
     Dosage: UNK
     Dates: start: 20080711
  4. GIANVI [Suspect]
     Dosage: UNK
     Dates: start: 20080711
  5. HYDROCHLOROTHIAZIDE [Concomitant]
     Dosage: 25 MG, UNK
     Dates: start: 20100401, end: 20101206
  6. PERCOCET [Concomitant]
  7. PROTONIX [Concomitant]
  8. BUTALBITAL [Concomitant]
     Dosage: 325-40
     Dates: start: 20100510, end: 20100915
  9. ACETAMINOPHEN [Concomitant]
     Dosage: 325-40
     Dates: start: 20100510, end: 20100915
  10. CAFFEINE [Concomitant]
     Dosage: 325-40
     Dates: start: 20100510, end: 20100915

REACTIONS (10)
  - Gallbladder injury [None]
  - Deep vein thrombosis [None]
  - Biliary dyskinesia [None]
  - Cholecystitis chronic [None]
  - Injury [None]
  - Pain [None]
  - Emotional distress [None]
  - General physical health deterioration [None]
  - Anxiety [None]
  - Pain [None]
